FAERS Safety Report 19857787 (Version 1)
Quarter: 2021Q3

REPORT INFORMATION
  Report Type: Spontaneous
  Country: US (occurrence: US)
  Receive Date: 20210921
  Receipt Date: 20210921
  Transmission Date: 20211014
  Serious: No
  Sender: FDA-Public Use
  Company Number: US-ASTRAZENECA-2021A723830

PATIENT
  Sex: Female
  Weight: 72.6 kg

DRUGS (2)
  1. ANTI?GLYCEMIC [Concomitant]
     Indication: DIABETES MELLITUS MANAGEMENT
     Route: 048
  2. BYDUREON BCISE [Suspect]
     Active Substance: EXENATIDE
     Route: 058

REACTIONS (5)
  - Injection site pain [Unknown]
  - Injection site erythema [Recovered/Resolved]
  - Injection site bruising [Unknown]
  - Cellulitis [Unknown]
  - Device defective [Unknown]
